FAERS Safety Report 9556031 (Version 1)
Quarter: 2013Q3

REPORT INFORMATION
  Report Type: Spontaneous
  Country: US (occurrence: None)
  Receive Date: 20130724
  Receipt Date: 20130724
  Transmission Date: 20140515
  Serious: No
  Sender: FDA-Public Use
  Company Number: PHEH2013US007154

PATIENT
  Age: 19 Year
  Sex: Female
  Weight: 77.1 kg

DRUGS (1)
  1. GILENYA [Suspect]
     Route: 048
     Dates: start: 20130304

REACTIONS (4)
  - Balance disorder [None]
  - Fall [None]
  - Headache [None]
  - Back pain [None]
